FAERS Safety Report 7995353-1 (Version None)
Quarter: 2011Q4

REPORT INFORMATION
  Report Type: 
  Country: None (occurrence: None)
  Receive Date: 20111220
  Receipt Date: 20111208
  Transmission Date: 20120403
  Serious: Yes (Hospitalization)
  Sender: FDA-Public Use
  Company Number: US-ROCHE-1021306

PATIENT
  Sex: Female

DRUGS (7)
  1. CARBOPLATIN [Suspect]
     Indication: BREAST CANCER
     Route: 042
     Dates: start: 20090922
  2. ONE A DAY 50 PLUS MULTIVITAMIN/MULTIMINERAL SUPPLEMENT [Concomitant]
  3. OXYELITE PRO [Concomitant]
  4. DOCETAXEL [Suspect]
     Indication: BREAST CANCER
     Route: 042
     Dates: start: 20090922
  5. FERROUS SULFATE TAB [Concomitant]
  6. LISINOPRIL [Concomitant]
  7. HERCEPTIN [Suspect]
     Indication: BREAST CANCER
     Route: 042
     Dates: start: 20090922

REACTIONS (1)
  - SYNCOPE [None]
